FAERS Safety Report 20038287 (Version 3)
Quarter: 2021Q4

REPORT INFORMATION
  Report Type: Spontaneous
  Country: US (occurrence: US)
  Receive Date: 20211105
  Receipt Date: 20211122
  Transmission Date: 20220303
  Serious: Yes (Other)
  Sender: FDA-Public Use
  Company Number: US-NOVARTISPH-NVSC2021US249041

PATIENT
  Age: 66 Year
  Sex: Male

DRUGS (10)
  1. DOCETAXEL [Suspect]
     Active Substance: DOCETAXEL
     Indication: Product used for unknown indication
     Dosage: UNK
     Route: 065
     Dates: start: 2014
  2. DOCETAXEL [Suspect]
     Active Substance: DOCETAXEL
     Dosage: UNK
     Route: 065
     Dates: start: 2021
  3. BICALUTAMIDE [Suspect]
     Active Substance: BICALUTAMIDE
     Indication: Product used for unknown indication
     Dosage: UNK
     Route: 065
  4. ENZALUTAMIDE [Suspect]
     Active Substance: ENZALUTAMIDE
     Indication: Product used for unknown indication
     Dosage: UNK
     Route: 065
     Dates: start: 2015
  5. ENZALUTAMIDE [Suspect]
     Active Substance: ENZALUTAMIDE
     Dosage: UNK
     Route: 065
     Dates: start: 2019
  6. ABIRATERONE [Suspect]
     Active Substance: ABIRATERONE
     Indication: Product used for unknown indication
     Dosage: UNK
     Route: 065
  7. MITOXANTRONE [Suspect]
     Active Substance: MITOXANTRONE HYDROCHLORIDE
     Indication: Product used for unknown indication
     Dosage: UNK
     Route: 065
  8. ELIGARD [Suspect]
     Active Substance: LEUPROLIDE ACETATE
     Indication: Product used for unknown indication
     Dosage: UNK
     Route: 065
  9. XGEVA [Suspect]
     Active Substance: DENOSUMAB
     Indication: Product used for unknown indication
     Dosage: UNK
     Route: 065
  10. PREDNISOLONE [Suspect]
     Active Substance: PREDNISOLONE

REACTIONS (5)
  - Metastases to bone [Unknown]
  - Musculoskeletal pain [Unknown]
  - Hot flush [Unknown]
  - Drug intolerance [Unknown]
  - Fatigue [Unknown]
